FAERS Safety Report 23961471 (Version 1)
Quarter: 2024Q2

REPORT INFORMATION
  Report Type: Spontaneous
  Country: US (occurrence: US)
  Receive Date: 20240611
  Receipt Date: 20240611
  Transmission Date: 20240716
  Serious: No
  Sender: FDA-Public Use
  Company Number: US-BRISTOL-MYERS SQUIBB COMPANY-2024-090798

PATIENT
  Age: 71 Year
  Sex: Female
  Weight: 40.82 kg

DRUGS (4)
  1. OPDIVO [Suspect]
     Active Substance: NIVOLUMAB
     Indication: Lung neoplasm malignant
     Dosage: FREQ : ONE INFUSION EVERY 3-WEEK ALTERNATING OPDIVO ONE INFUSION THEN BOTH TOGETHER THEN YERVOY THE
     Dates: start: 202209
  2. YERVOY [Suspect]
     Active Substance: IPILIMUMAB
     Indication: Lung neoplasm malignant
     Dosage: ONE INFUSION EVERY 3-WEEK ALTERNATING OPDIVO ONE INFUSION THEN BOTH TOGETHER THEN YERVOY THE NEXT IN
     Dates: start: 202209
  3. ATROVENT [Concomitant]
     Active Substance: IPRATROPIUM BROMIDE
     Indication: Product used for unknown indication
  4. LEVALBUTEROL [Concomitant]
     Active Substance: LEVALBUTEROL
     Indication: Product used for unknown indication

REACTIONS (5)
  - Fatigue [Unknown]
  - Weight decreased [Unknown]
  - Irritable bowel syndrome [Unknown]
  - Dyspnoea [Unknown]
  - Off label use [Unknown]

NARRATIVE: CASE EVENT DATE: 20220101
